FAERS Safety Report 6048300-6 (Version None)
Quarter: 2009Q1

REPORT INFORMATION
  Report Type: 
  Country: None (occurrence: None)
  Receive Date: 20090123
  Receipt Date: 20090119
  Transmission Date: 20090719
  Serious: Yes (Other)
  Sender: FDA-Public Use
  Company Number: CA-JNJCH-2009001624

PATIENT
  Sex: Female

DRUGS (1)
  1. LISTERINE WHITENING QUICK DISSOLVING STRIPS [Suspect]
     Indication: DENTAL CARE
     Dosage: TEXT:^2 APPLICATIONS^ UNSPECIFIED
     Route: 048
     Dates: start: 20090118, end: 20090118

REACTIONS (4)
  - CONTUSION [None]
  - LIP SWELLING [None]
  - SWOLLEN TONGUE [None]
  - TONGUE DISORDER [None]
